FAERS Safety Report 7715503-1 (Version None)
Quarter: 2011Q3

REPORT INFORMATION
  Report Type: 
  Country: None (occurrence: None)
  Receive Date: 20110829
  Receipt Date: 20110823
  Transmission Date: 20111222
  Serious: Yes (Other)
  Sender: FDA-Public Use
  Company Number: US-PFIZER INC-2011150389

PATIENT
  Sex: Female
  Weight: 63.5 kg

DRUGS (16)
  1. LIPITOR [Suspect]
     Indication: BLOOD CHOLESTEROL INCREASED
     Dosage: 80 MG, 1X/DAY
     Route: 048
     Dates: start: 20080501, end: 20110701
  2. PREMARIN [Concomitant]
     Indication: HORMONE THERAPY
     Dosage: 0.45 MG, 1X/DAY
  3. ACETYLSALICYLIC ACID [Concomitant]
     Indication: CARDIAC DISORDER
     Dosage: 81 MG, UNK
  4. MAGNESIUM [Concomitant]
     Dosage: 250 MG, 1X/DAY
  5. LIPITOR [Suspect]
     Indication: LIPIDS INCREASED
  6. KLOR-CON [Concomitant]
     Dosage: UNK
  7. VITAMIN D [Concomitant]
     Dosage: 1000 UG, 1X/DAY
  8. CHONDROITIN [Concomitant]
     Dosage: 120 MG, UNK
  9. BIOTIN [Concomitant]
     Dosage: 1000 UG, 1X/DAY
  10. MICARDIS HCT [Concomitant]
     Indication: HYPERTENSION
     Dosage: 80/25 MG, 1X/DAY
  11. LOVAZA [Concomitant]
     Dosage: 1 G, UNK
  12. CENTRUM [Concomitant]
     Dosage: UNK, 1X/DAY
  13. FOSAMAX [Concomitant]
     Indication: OSTEOPOROSIS
     Dosage: 70 MG, WEEKLY
  14. VITAMIN B-12 [Concomitant]
     Dosage: 15 UG, 1X/DAY
  15. DYNACIRC [Concomitant]
     Indication: HYPERTENSION
     Dosage: 10 MG, 2X/DAY
  16. GLUCOSAMINE [Concomitant]
     Dosage: 15 MG, UNK

REACTIONS (5)
  - BLOOD CHOLESTEROL INCREASED [None]
  - HEPATIC ENZYME INCREASED [None]
  - BLOOD UREA INCREASED [None]
  - ALANINE AMINOTRANSFERASE INCREASED [None]
  - ASPARTATE AMINOTRANSFERASE INCREASED [None]
